FAERS Safety Report 25874699 (Version 2)
Quarter: 2025Q4

REPORT INFORMATION
  Report Type: Spontaneous
  Country: US (occurrence: US)
  Receive Date: 20251002
  Receipt Date: 20251009
  Transmission Date: 20260118
  Serious: No
  Sender: PFIZER
  Company Number: US-PFIZER INC-202500195624

PATIENT
  Age: 44 Year
  Sex: Female

DRUGS (1)
  1. IBRANCE [Suspect]
     Active Substance: PALBOCICLIB
     Indication: Breast cancer
     Dosage: 100 MG, CYCLIC (ONCE DAILY FOR 21 DAYS THEN 7 DAYS OFF) (21/28 CYCLE)
     Route: 048
     Dates: start: 20250815

REACTIONS (4)
  - Full blood count decreased [Recovering/Resolving]
  - Nausea [Recovering/Resolving]
  - Dizziness [Unknown]
  - Asthenia [Unknown]

NARRATIVE: CASE EVENT DATE: 20250815
